FAERS Safety Report 6551752-6 (Version None)
Quarter: 2010Q1

REPORT INFORMATION
  Report Type: 
  Country: None (occurrence: None)
  Receive Date: 20100126
  Receipt Date: 20100121
  Transmission Date: 20100710
  Serious: Yes (Hospitalization)
  Sender: FDA-Public Use
  Company Number: JP-B.I. PHARMACEUTICALS,INC./RIDGEFIELD-2009-BP-13393NB

PATIENT
  Sex: Female
  Weight: 39 kg

DRUGS (4)
  1. MICARDIS [Suspect]
     Indication: HYPERTENSION
     Dosage: 40 MG
     Route: 048
     Dates: start: 20061013, end: 20090713
  2. CELECOX [Concomitant]
     Dosage: 400 MG
     Route: 048
     Dates: start: 20071102, end: 20090713
  3. LIPITOR [Concomitant]
     Dosage: 5 MG
     Route: 048
     Dates: start: 20060118, end: 20090713
  4. UROCALUN [Concomitant]
     Indication: CALCULUS URETERIC
     Dosage: 2DF
     Route: 048
     Dates: start: 20040401, end: 20090713

REACTIONS (3)
  - CONSTIPATION [None]
  - EATING DISORDER [None]
  - SCHIZOPHRENIA [None]
